FAERS Safety Report 24707397 (Version 1)
Quarter: 2024Q4

REPORT INFORMATION
  Report Type: Spontaneous
  Country: NL (occurrence: NL)
  Receive Date: 20241206
  Receipt Date: 20241206
  Transmission Date: 20250115
  Serious: Yes (Death, Other)
  Sender: AMGEN
  Company Number: NL-AMGEN-NLDSP2024236324

PATIENT

DRUGS (2)
  1. BEVACIZUMAB [Suspect]
     Active Substance: BEVACIZUMAB
     Indication: Colorectal cancer metastatic
     Dosage: UNK
     Route: 065
  2. CAPOX [Concomitant]

REACTIONS (7)
  - Death [Fatal]
  - Colorectal cancer metastatic [Unknown]
  - Pneumothorax [Unknown]
  - Ileus [Unknown]
  - Pleural effusion [Unknown]
  - Haematoma [Recovered/Resolved]
  - Therapy partial responder [Unknown]
